FAERS Safety Report 4701412-9 (Version None)
Quarter: 2005Q2

REPORT INFORMATION
  Report Type: 
  Country: None (occurrence: None)
  Receive Date: 20050627
  Receipt Date: 20050614
  Transmission Date: 20051028
  Serious: Yes (Life-Threatening, Hospitalization)
  Sender: FDA-Public Use
  Company Number: MK200506-0046-2

PATIENT
  Age: 70 Year
  Sex: Female

DRUGS (8)
  1. OPTIRAY 320 [Suspect]
     Indication: COMPUTERISED TOMOGRAM
     Dosage: ONE TIME, IV
     Route: 042
     Dates: start: 20050509, end: 20050509
  2. BERAPROST SODIUM [Concomitant]
  3. TEPRENONE [Concomitant]
  4. DILTIAZEM HYDROCHLORIDE [Concomitant]
  5. CLINIDIPINE [Concomitant]
  6. ISOSORBIDE DINITRATE [Concomitant]
  7. BROTIZOLAM [Concomitant]
  8. L-ASPARTATE POTASSIUM [Concomitant]

REACTIONS (11)
  - ABDOMINAL PAIN [None]
  - ANAPHYLACTIC SHOCK [None]
  - BLOOD PRESSURE DECREASED [None]
  - CONTRAST MEDIA REACTION [None]
  - CYANOSIS [None]
  - DEPRESSED LEVEL OF CONSCIOUSNESS [None]
  - FEELING ABNORMAL [None]
  - METABOLIC ACIDOSIS [None]
  - NAUSEA [None]
  - PULSE ABSENT [None]
  - RESPIRATORY DEPRESSION [None]
